FAERS Safety Report 8489991-X (Version None)
Quarter: 2012Q2

REPORT INFORMATION
  Report Type: 
  Country: None (occurrence: None)
  Receive Date: 20120626
  Receipt Date: 20120611
  Transmission Date: 20120825
  Serious: Yes (Death, Other)
  Sender: FDA-Public Use
  Company Number: 2011MA015542

PATIENT
  Sex: Male

DRUGS (13)
  1. DIATX ZN [Concomitant]
  2. EFFEXOR [Concomitant]
  3. HECTORAL [Concomitant]
  4. BACTRIM DS [Concomitant]
  5. METOCLOPRAMIDE [Suspect]
     Indication: DIABETIC GASTROPARESIS
     Dates: start: 20070101, end: 20091201
  6. SENSIPAR [Concomitant]
  7. DARVOCET-N [Concomitant]
  8. DOCUSATE SODIUM [Concomitant]
  9. LISINOPRIL [Concomitant]
  10. FLUDROCORTISONE ACETATE [Concomitant]
  11. GABAPENTIN [Concomitant]
  12. PREVACID [Concomitant]
  13. RENVELA [Concomitant]

REACTIONS (4)
  - DYSTONIA [None]
  - ECONOMIC PROBLEM [None]
  - HORDEOLUM [None]
  - EMOTIONAL DISORDER [None]
